FAERS Safety Report 25266581 (Version 1)
Quarter: 2025Q2

REPORT INFORMATION
  Report Type: Report from Study
  Country: CA (occurrence: CA)
  Receive Date: 20250505
  Receipt Date: 20250505
  Transmission Date: 20250717
  Serious: Yes (Hospitalization, Other)
  Sender: CELLTRION
  Company Number: CA-CELLTRION INC.-2025CA012780

PATIENT

DRUGS (2)
  1. ADALIMUMAB [Suspect]
     Active Substance: ADALIMUMAB
     Indication: Psoriatic arthropathy
     Dosage: 40 MILLIGRAM, 1 EVERY 2 WEEKS
     Route: 065
  2. DULOXETINE [Concomitant]
     Active Substance: DULOXETINE
     Indication: Product used for unknown indication
     Route: 065

REACTIONS (7)
  - Angina pectoris [Unknown]
  - Discomfort [Unknown]
  - Rheumatoid arthritis [Unknown]
  - Illness [Unknown]
  - Injection site pain [Unknown]
  - Pain [Unknown]
  - Drug ineffective [Unknown]
